FAERS Safety Report 5739366-9 (Version None)
Quarter: 2008Q2

REPORT INFORMATION
  Report Type: 
  Country: None (occurrence: None)
  Receive Date: 20080513
  Receipt Date: 20080501
  Transmission Date: 20081010
  Serious: Yes (Hospitalization)
  Sender: FDA-Public Use
  Company Number: TRP_05700_2008

PATIENT
  Sex: Female

DRUGS (6)
  1. RIBAVIRIN [Suspect]
     Indication: HEPATITIS C VIRUS
     Dosage: 1200 MG ORAL
     Route: 048
     Dates: start: 20080401
  2. RIBAVIRIN [Suspect]
     Indication: HEPATITIS C VIRUS
     Dosage: DF ORAL
     Route: 048
     Dates: start: 20030401, end: 20031001
  3. INTERFERON ALFA-2A [Suspect]
     Indication: HEPATITIS C VIRUS
     Dosage: SUBCUTANEOUS
     Route: 058
     Dates: start: 20030401, end: 20031001
  4. PEGASYS [Suspect]
     Indication: HEPATITIS C VIRUS
     Dosage: 180 UG 1X/WEEK SUBCUTANEOUS
     Route: 058
     Dates: start: 20080401
  5. ANTIHYPERTENSIVES [Suspect]
     Indication: HYPERTENSION
     Dosage: DF
     Dates: start: 20030401
  6. SERTRALINE [Concomitant]

REACTIONS (7)
  - ANAPHYLACTOID REACTION [None]
  - DEPRESSION [None]
  - FATIGUE [None]
  - NAUSEA [None]
  - NO THERAPEUTIC RESPONSE [None]
  - RASH PRURITIC [None]
  - VOMITING [None]
